FAERS Safety Report 7123672-X (Version None)
Quarter: 2010Q4

REPORT INFORMATION
  Report Type: 
  Country: None (occurrence: None)
  Receive Date: 20101125
  Receipt Date: 20101111
  Transmission Date: 20110411
  Serious: Yes (Hospitalization)
  Sender: FDA-Public Use
  Company Number: PHHY2010BR77422

PATIENT
  Sex: Male

DRUGS (2)
  1. EXELON [Suspect]
     Indication: MEMORY IMPAIRMENT
     Dosage: 9MG/5CM2
     Route: 062
  2. EXELON [Suspect]
     Dosage: 18MG/10CM2
     Route: 062

REACTIONS (5)
  - ASTHENIA [None]
  - INFLUENZA [None]
  - INJECTION SITE DISCOLOURATION [None]
  - NASOPHARYNGITIS [None]
  - PYREXIA [None]
